FAERS Safety Report 10381659 (Version 1)
Quarter: 2014Q3

REPORT INFORMATION
  Report Type: Spontaneous
  Country: US (occurrence: US)
  Receive Date: 20140813
  Receipt Date: 20140813
  Transmission Date: 20150326
  Serious: Yes (Other)
  Sender: FDA-Public Use
  Company Number: US-ACTAVIS-2014-17298

PATIENT
  Age: 31 Year
  Sex: Male
  Weight: 76 kg

DRUGS (12)
  1. CHLORPROMAZINE HYDROCHLORIDE (WATSON LABORATORIES) [Interacting]
     Active Substance: CHLORPROMAZINE HYDROCHLORIDE
     Dosage: 50 MG, TID
     Route: 065
  2. CLOMIPRAMINE HYDROCHLORIDE (UNKNOWN) [Interacting]
     Active Substance: CLOMIPRAMINE HYDROCHLORIDE
     Dosage: 25 MG, QHS
     Route: 065
  3. CLOMIPRAMINE HYDROCHLORIDE (UNKNOWN) [Interacting]
     Active Substance: CLOMIPRAMINE HYDROCHLORIDE
     Dosage: 200 MG, QHS
     Route: 065
  4. DIVALPROEX SODIUM DR [Interacting]
     Active Substance: DIVALPROEX SODIUM
     Indication: PRODUCT USED FOR UNKNOWN INDICATION
     Dosage: 1250 MG, DAILY
     Route: 065
  5. DOCUSATE [Concomitant]
     Active Substance: DOCUSATE
     Indication: PRODUCT USED FOR UNKNOWN INDICATION
     Dosage: 100 MG, DAILY
     Route: 065
  6. HYDROCHLOROTHIAZIDE. [Concomitant]
     Active Substance: HYDROCHLOROTHIAZIDE
     Indication: PRODUCT USED FOR UNKNOWN INDICATION
     Dosage: 25 MG, DAILY
     Route: 065
  7. CHLORPROMAZINE HYDROCHLORIDE (WATSON LABORATORIES) [Suspect]
     Active Substance: CHLORPROMAZINE HYDROCHLORIDE
     Indication: AUTISM SPECTRUM DISORDER
     Dosage: 200 MG, TID
     Route: 065
  8. ATENOLOL. [Concomitant]
     Active Substance: ATENOLOL
     Indication: PRODUCT USED FOR UNKNOWN INDICATION
     Dosage: 50 MG, DAILY
     Route: 065
  9. CLOMIPRAMINE HYDROCHLORIDE (UNKNOWN) [Interacting]
     Active Substance: CLOMIPRAMINE HYDROCHLORIDE
     Indication: OBSESSIVE-COMPULSIVE DISORDER
     Dosage: 100 MG, QHS
     Route: 065
  10. MECLIZINE [Concomitant]
     Active Substance: MECLIZINE\MECLIZINE HYDROCHLORIDE
     Indication: PRODUCT USED FOR UNKNOWN INDICATION
     Dosage: 12.5 MG, TID
     Route: 065
  11. CHLORPROMAZINE HYDROCHLORIDE (WATSON LABORATORIES) [Interacting]
     Active Substance: CHLORPROMAZINE HYDROCHLORIDE
     Dosage: 100 MG, TID
     Route: 065
  12. GLATIRAMER [Concomitant]
     Active Substance: GLATIRAMER
     Indication: PRODUCT USED FOR UNKNOWN INDICATION
     Dosage: 20 MG, DAILY
     Route: 065

REACTIONS (3)
  - Pleurothotonus [Not Recovered/Not Resolved]
  - Sexual dysfunction [Unknown]
  - Drug interaction [Unknown]
